FAERS Safety Report 21981003 (Version 6)
Quarter: 2024Q3

REPORT INFORMATION
  Report Type: Report from Study
  Country: US (occurrence: US)
  Receive Date: 20230211
  Receipt Date: 20240821
  Transmission Date: 20241017
  Serious: No
  Sender: NOVARTIS
  Company Number: US-002147023-NVSC2023US028883

PATIENT
  Age: 37 Year
  Sex: Female

DRUGS (1)
  1. KESIMPTA [Suspect]
     Active Substance: OFATUMUMAB
     Indication: Product used for unknown indication
     Dosage: UNK UNK, QMO
     Route: 065
     Dates: start: 20230112

REACTIONS (5)
  - Injection site bruising [Recovered/Resolved]
  - Injection site pain [Recovered/Resolved]
  - Inappropriate schedule of product administration [Unknown]
  - Product prescribing issue [Unknown]
  - Product temperature excursion issue [Unknown]

NARRATIVE: CASE EVENT DATE: 20230119
